FAERS Safety Report 5664606-4 (Version None)
Quarter: 2008Q1

REPORT INFORMATION
  Report Type: 
  Country: None (occurrence: None)
  Receive Date: 20080314
  Receipt Date: 20080128
  Transmission Date: 20080703
  Serious: Yes (Death)
  Sender: FDA-Public Use
  Company Number: US-TYCO HEALTHCARE/MALLINCKRODT-T200800344

PATIENT

DRUGS (4)
  1. METHADOSE [Suspect]
  2. AMITRIPTYLINE HCL [Suspect]
  3. OPIOIDS [Suspect]
  4. MARIJUANA [Suspect]

REACTIONS (1)
  - COMPLETED SUICIDE [None]
